FAERS Safety Report 14515091 (Version 1)
Quarter: 2018Q1

REPORT INFORMATION
  Report Type: Report from Study
  Country: US (occurrence: US)
  Receive Date: 20180210
  Receipt Date: 20180210
  Transmission Date: 20180509
  Serious: Yes (Other)
  Sender: FDA-Public Use
  Company Number: PHEH2018US004523

PATIENT
  Sex: Female

DRUGS (2)
  1. COSENTYX [Suspect]
     Active Substance: SECUKINUMAB
     Indication: PRODUCT USED FOR UNKNOWN INDICATION
     Dosage: 300 MG, QMO
     Route: 058
  2. ADDERALL [Suspect]
     Active Substance: AMPHETAMINE ASPARTATE\AMPHETAMINE SULFATE\DEXTROAMPHETAMINE SACCHARATE\DEXTROAMPHETAMINE SULFATE
     Indication: PRODUCT USED FOR UNKNOWN INDICATION
     Route: 065

REACTIONS (11)
  - Stress [Unknown]
  - Panic attack [Unknown]
  - Post-traumatic stress disorder [Unknown]
  - Pain [Unknown]
  - Accident [Unknown]
  - Concussion [Unknown]
  - Bipolar I disorder [Unknown]
  - Migraine [Unknown]
  - Back disorder [Unknown]
  - Underweight [Unknown]
  - Weight decreased [Unknown]
